FAERS Safety Report 5318685-4 (Version None)
Quarter: 2007Q2

REPORT INFORMATION
  Report Type: 
  Country: None (occurrence: None)
  Receive Date: 20070508
  Receipt Date: 20070503
  Transmission Date: 20071010
  Serious: Yes (Life-Threatening)
  Sender: FDA-Public Use
  Company Number: DE-JNJFOC-20070501258

PATIENT
  Sex: Female

DRUGS (4)
  1. REOPRO [Suspect]
     Indication: ACUTE MYOCARDIAL INFARCTION
     Route: 016
  2. CLOPIDOGREL [Concomitant]
  3. HEPARIN [Concomitant]
     Route: 042
  4. METOPROLOL SUCCINATE [Concomitant]
     Indication: CARDIAC DISORDER
     Route: 042

REACTIONS (1)
  - VENTRICULAR FIBRILLATION [None]
